FAERS Safety Report 18555556 (Version 2)
Quarter: 2021Q2

REPORT INFORMATION
  Report Type: Report from Study
  Country: US (occurrence: US)
  Receive Date: 20201127
  Receipt Date: 20210424
  Transmission Date: 20210717
  Serious: Yes (Hospitalization)
  Sender: FDA-Public Use
  Company Number: US-TAKEDA-2020TUS051412

PATIENT
  Sex: Male
  Weight: 21 kg

DRUGS (6)
  1. HUMAN NORMAL IMMUNOGLOBULIN; LIQUID [Suspect]
     Active Substance: HUMAN IMMUNOGLOBULIN G
     Indication: WISKOTT-ALDRICH SYNDROME
     Dosage: 5 GRAM, QD
     Route: 042
     Dates: start: 20200723
  2. BACTRIM [Concomitant]
     Active Substance: SULFAMETHOXAZOLE\TRIMETHOPRIM
  3. AMICAR [Concomitant]
     Active Substance: AMINOCAPROIC ACID
  4. HUMAN NORMAL IMMUNOGLOBULIN; LIQUID [Suspect]
     Active Substance: HUMAN IMMUNOGLOBULIN G
     Dosage: 6 GRAM, QD
     Route: 042
     Dates: start: 20200723
  5. PROMACTA [Concomitant]
     Active Substance: ELTROMBOPAG OLAMINE
  6. TIMOLOL. [Concomitant]
     Active Substance: TIMOLOL

REACTIONS (2)
  - Blood immunoglobulin G decreased [Unknown]
  - Bone marrow transplant [Unknown]
